FAERS Safety Report 8586053-8 (Version None)
Quarter: 2012Q3

REPORT INFORMATION
  Report Type: 
  Country: None (occurrence: None)
  Receive Date: 20120810
  Receipt Date: 20120717
  Transmission Date: 20120928
  Serious: Yes (Other)
  Sender: FDA-Public Use
  Company Number: JP-009507513-2012SP027242

PATIENT

DRUGS (18)
  1. REBETOL [Suspect]
     Indication: HEPATITIS C
     Dosage: 600 MG, QD
     Route: 048
     Dates: start: 20120321, end: 20120327
  2. REBETOL [Suspect]
     Dosage: 200 MG, QD
     Route: 048
     Dates: start: 20120328
  3. ANTIVIRAL (UNSPECIFIED) [Suspect]
     Indication: HEPATITIS C
     Dosage: 1500 MG, QD
     Route: 048
     Dates: start: 20120321
  4. TELAVIC [Suspect]
     Indication: HEPATITIS C
     Route: 048
     Dates: start: 20120321
  5. TELAVIC [Suspect]
     Route: 048
     Dates: start: 20120606
  6. PEG-INTRON [Suspect]
     Dosage: 30MCG/KG/WEEK
     Route: 058
     Dates: start: 20120411
  7. PEG-INTRON [Suspect]
     Dosage: 0.89MCG/KG/WEEK
     Route: 058
     Dates: end: 20120605
  8. REBETOL [Suspect]
     Route: 048
     Dates: start: 20120328, end: 20120605
  9. GASMOTIN [Concomitant]
     Indication: DECREASED APPETITE
     Dosage: FORMULATION POR
     Route: 048
     Dates: start: 20120411
  10. ALLEGRA [Concomitant]
     Indication: SKIN DISORDER
     Dosage: FORMULATION POR
     Route: 048
     Dates: start: 20120326, end: 20120401
  11. ANTEBATE [Concomitant]
     Indication: SKIN DISORDER
     Dosage: AS NEEDED
     Route: 051
     Dates: start: 20120326, end: 20120401
  12. [THERAPY UNSPECIFIED] [Concomitant]
     Route: 048
     Dates: start: 20120404, end: 20120410
  13. PEG-INTRON [Suspect]
     Dosage: 40MCG/KG/WEEK
     Route: 058
     Dates: start: 20120425
  14. PEG-INTRON [Suspect]
     Indication: HEPATITIS C
     Dosage: 1.33MCG/KG/WEEK
     Route: 058
     Dates: start: 20120321
  15. TELAVIC [Suspect]
     Route: 048
     Dates: start: 20120530, end: 20120605
  16. HERBS (UNSPECIFIED) [Concomitant]
     Indication: DECREASED APPETITE
     Dosage: TRADE NAME UNKNOWN; FORMULATION POR
     Route: 048
     Dates: start: 20120404, end: 20120410
  17. PEG-INTRON [Suspect]
     Dosage: 0MCG/KG/WEEK
     Route: 058
     Dates: start: 20120606
  18. REBETOL [Suspect]
     Route: 048
     Dates: start: 20120606

REACTIONS (2)
  - HAEMOGLOBIN DECREASED [None]
  - PLATELET COUNT DECREASED [None]
